FAERS Safety Report 16254843 (Version 3)
Quarter: 2019Q4

REPORT INFORMATION
  Report Type: Report from Study
  Country: AR (occurrence: AR)
  Receive Date: 20190430
  Receipt Date: 20191003
  Transmission Date: 20200122
  Serious: Yes (Other)
  Sender: FDA-Public Use
  Company Number: PHHY2019AR075111

PATIENT
  Age: 72 Year
  Sex: Male

DRUGS (5)
  1. CALCIUM [Concomitant]
     Active Substance: CALCIUM
     Indication: PRODUCT USED FOR UNKNOWN INDICATION
     Dosage: UNK
     Route: 065
     Dates: start: 2018
  2. ABIRATERONE. [Concomitant]
     Active Substance: ABIRATERONE ACETATE
     Indication: PRODUCT USED FOR UNKNOWN INDICATION
     Dosage: UNK
     Route: 065
  3. DENOSUMAB [Concomitant]
     Active Substance: DENOSUMAB
     Indication: PRODUCT USED FOR UNKNOWN INDICATION
     Dosage: 70 MG, QMO
     Route: 065
  4. SANDOSTATIN LAR DEPOT [Suspect]
     Active Substance: OCTREOTIDE ACETATE
     Indication: NEUROENDOCRINE TUMOUR
     Dosage: 30 MG, QMO (EVERY 28 DAYS)
     Route: 065
     Dates: start: 20181127
  5. BICALUTAMIDE. [Concomitant]
     Active Substance: BICALUTAMIDE
     Indication: PROSTATE CANCER
     Dosage: UNK
     Route: 065
     Dates: start: 2016

REACTIONS (12)
  - Malaise [Not Recovered/Not Resolved]
  - Yellow skin [Unknown]
  - Blood bilirubin increased [Recovering/Resolving]
  - Blood glucose increased [Recovered/Resolved]
  - Metastases to bone [Recovered/Resolved]
  - Androgen deficiency [Not Recovered/Not Resolved]
  - Pulmonary haemorrhage [Not Recovered/Not Resolved]
  - Listless [Not Recovered/Not Resolved]
  - Gastrointestinal disorder [Recovering/Resolving]
  - Synovial cyst [Not Recovered/Not Resolved]
  - Blood bilirubin decreased [Not Recovered/Not Resolved]
  - Red blood cell count decreased [Recovering/Resolving]

NARRATIVE: CASE EVENT DATE: 201903
